FAERS Safety Report 11371787 (Version 1)
Quarter: 2015Q3

REPORT INFORMATION
  Report Type: Report from Study
  Country: IT (occurrence: IT)
  Receive Date: 20150812
  Receipt Date: 20150812
  Transmission Date: 20151125
  Serious: Yes (Other)
  Sender: FDA-Public Use
  Company Number: IT-B.I. PHARMACEUTICALS,INC./RIDGEFIELD-2015-BI-43900GD

PATIENT
  Age: 60 Year
  Sex: Female

DRUGS (4)
  1. LEVODOPA [Concomitant]
     Active Substance: LEVODOPA
     Indication: PARKINSON^S DISEASE
     Dosage: 300 MG
     Route: 065
  2. SIFROL [Suspect]
     Active Substance: PRAMIPEXOLE
     Indication: PARKINSON^S DISEASE
     Dosage: 4.5 MG
     Route: 065
  3. LEVODOPA [Concomitant]
     Active Substance: LEVODOPA
     Dosage: 600 MG
     Route: 065
  4. LEVODOPA [Concomitant]
     Active Substance: LEVODOPA
     Dosage: SELF- ADMINISTER HIGHER DOSES WITH FREQUENT RESCUE DOSES (UP TO A TOTAL DOSE OF 1200 MG/DAY)
     Route: 065

REACTIONS (8)
  - Drug withdrawal syndrome [Unknown]
  - Fatigue [Unknown]
  - Anxiety [Unknown]
  - Depression [Recovered/Resolved]
  - Apathy [Recovered/Resolved]
  - Anhedonia [Unknown]
  - Pain [Unknown]
  - Insomnia [Unknown]
